FAERS Safety Report 4800741-8 (Version None)
Quarter: 2005Q4

REPORT INFORMATION
  Report Type: 
  Country: None (occurrence: None)
  Receive Date: 20051017
  Receipt Date: 20051005
  Transmission Date: 20060501
  Serious: Yes (Hospitalization)
  Sender: FDA-Public Use
  Company Number: PHBS2005JP14617

PATIENT
  Age: 1 Year
  Sex: Male

DRUGS (1)
  1. VOLTAREN [Suspect]
     Indication: ANTIPYRESIS
     Dosage: 25 MG/DAY
     Route: 054
     Dates: start: 20051004, end: 20051004

REACTIONS (2)
  - HYPOTHERMIA [None]
  - PERIPHERAL CIRCULATORY FAILURE [None]
